FAERS Safety Report 8425819-1 (Version None)
Quarter: 2012Q2

REPORT INFORMATION
  Report Type: 
  Country: None (occurrence: None)
  Receive Date: 20120611
  Receipt Date: 20120606
  Transmission Date: 20120825
  Serious: Yes (Death, Hospitalization)
  Sender: FDA-Public Use
  Company Number: DE-ASTELLAS-2012EU004068

PATIENT
  Age: 65 Year
  Sex: Male
  Weight: 194 kg

DRUGS (6)
  1. PROGRAF [Suspect]
     Indication: IMMUNOSUPPRESSION
     Dosage: UNK
     Route: 065
  2. EPIVIR [Concomitant]
     Indication: HEPATITIS B
     Dosage: 150 MG, UID/QD
     Route: 065
  3. URSO FALK [Concomitant]
     Indication: CHOLELITHIASIS
     Dosage: 500 MG, BID
     Route: 065
  4. BISOPROLOL FUMARATE [Concomitant]
     Indication: HYPERTENSION
     Dosage: 5 MG, UID/QD
     Route: 065
  5. RAMIPRIL [Concomitant]
     Indication: HYPERTENSION
     Dosage: 2.5 MG, UID/QD
     Route: 065
  6. RAPAMUNE [Suspect]
     Indication: PROPHYLAXIS AGAINST TRANSPLANT REJECTION
     Dosage: UNK
     Route: 065
     Dates: start: 20071227

REACTIONS (1)
  - ADENOCARCINOMA PANCREAS [None]
